FAERS Safety Report 10609199 (Version 2)
Quarter: 2015Q1

REPORT INFORMATION
  Report Type: Report from Study
  Country: DE (occurrence: DE)
  Receive Date: 20141126
  Receipt Date: 20150324
  Transmission Date: 20150720
  Serious: Yes (Disabling)
  Sender: FDA-Public Use
  Company Number: DE-ROCHE-1497215

PATIENT
  Age: 84 Year
  Sex: Male
  Weight: 66 kg

DRUGS (3)
  1. RANIBIZUMAB [Suspect]
     Active Substance: RANIBIZUMAB
     Indication: CHOROIDAL NEOVASCULARISATION
     Dosage: AS REQUIRED
     Route: 050
     Dates: start: 20121129
  2. RANIBIZUMAB [Suspect]
     Active Substance: RANIBIZUMAB
     Dosage: AS REQUIRED?LAST DOSE PROIR TO SAE ON 18/FEB/2013
     Route: 050
     Dates: start: 20130218, end: 20130218
  3. RANIBIZUMAB [Suspect]
     Active Substance: RANIBIZUMAB
     Dosage: AS REQURIED
     Route: 050
     Dates: start: 20130117, end: 20130117

REACTIONS (1)
  - Macular scar [Not Recovered/Not Resolved]

NARRATIVE: CASE EVENT DATE: 20130218
